FAERS Safety Report 7136102-9 (Version None)
Quarter: 2010Q4

REPORT INFORMATION
  Report Type: 
  Country: None (occurrence: None)
  Receive Date: 20101204
  Receipt Date: 20101028
  Transmission Date: 20110411
  Serious: Yes (Hospitalization, Other)
  Sender: FDA-Public Use
  Company Number: US-BAYER-200941485NA

PATIENT

DRUGS (11)
  1. YASMIN [Suspect]
     Indication: CONTRACEPTION
     Route: 048
     Dates: start: 20050501, end: 20080101
  2. ACETAMINOPHEN [Concomitant]
     Indication: HEADACHE
     Route: 048
  3. FLU VACCINATION [Concomitant]
     Dates: start: 20090101, end: 20090101
  4. FIORICET [Concomitant]
     Indication: HEADACHE
     Route: 048
     Dates: start: 20091116
  5. IMITREX [Concomitant]
     Indication: HEADACHE
  6. COLACE [Concomitant]
     Dates: start: 20090301
  7. VALIUM [Concomitant]
     Dates: start: 20090301
  8. IBUPROFEN [Concomitant]
     Dates: start: 20051020
  9. COLACE [Concomitant]
     Dates: start: 20080101
  10. IMITREX [Concomitant]
     Indication: MIGRAINE
     Dates: start: 20080301
  11. REGLAN [Concomitant]
     Indication: MIGRAINE
     Dates: start: 20080301

REACTIONS (5)
  - DEEP VEIN THROMBOSIS [None]
  - FOCAL NODULAR HYPERPLASIA [None]
  - HEPATIC MASS [None]
  - MIGRAINE [None]
  - PULMONARY EMBOLISM [None]
